FAERS Safety Report 16087025 (Version 2)
Quarter: 2019Q2

REPORT INFORMATION
  Report Type: Report from Study
  Country: None (occurrence: US)
  Receive Date: 20190319
  Receipt Date: 20190404
  Transmission Date: 20190711
  Serious: Yes (Other)
  Sender: FDA-Public Use
  Company Number: US-ABBVIE-19S-163-2702807-00

PATIENT
  Age: 63 Year
  Sex: Female

DRUGS (1)
  1. CREON [Suspect]
     Active Substance: PANCRELIPASE AMYLASE\PANCRELIPASE LIPASE\PANCRELIPASE PROTEASE
     Indication: PRODUCT USED FOR UNKNOWN INDICATION
     Route: 048
     Dates: start: 20181023

REACTIONS (11)
  - Pain [Unknown]
  - Dizziness [Unknown]
  - Pancreatitis acute [Unknown]
  - Back pain [Unknown]
  - Pyrexia [Unknown]
  - Headache [Unknown]
  - Abdominal pain [Not Recovered/Not Resolved]
  - Toothache [Unknown]
  - Hypoxia [Unknown]
  - Device issue [Unknown]
  - Nausea [Unknown]

NARRATIVE: CASE EVENT DATE: 20190111
